FAERS Safety Report 24097956 (Version 3)
Quarter: 2025Q3

REPORT INFORMATION
  Report Type: Spontaneous
  Country: US (occurrence: US)
  Receive Date: 20240716
  Receipt Date: 20250930
  Transmission Date: 20251020
  Serious: Yes (Other)
  Sender: SECURA BIO
  Company Number: US-SECURA BIO, INC.-2024-SECUR-US000069

PATIENT

DRUGS (1)
  1. COPIKTRA [Suspect]
     Active Substance: DUVELISIB
     Indication: Non-Hodgkin^s lymphoma
     Dosage: 25 MG, BID (BY MOUTH)
     Route: 048
     Dates: start: 202405

REACTIONS (8)
  - Neuropathy peripheral [Unknown]
  - Hypoaesthesia [Unknown]
  - Paraesthesia [Unknown]
  - Discomfort [Unknown]
  - Fatigue [Unknown]
  - Asthenia [Unknown]
  - Oral pain [Unknown]
  - Oedema [Unknown]

NARRATIVE: CASE EVENT DATE: 20240101
